FAERS Safety Report 16804466 (Version 2)
Quarter: 2019Q4

REPORT INFORMATION
  Report Type: Spontaneous
  Country: US (occurrence: US)
  Receive Date: 20190913
  Receipt Date: 20191216
  Transmission Date: 20200122
  Serious: No
  Sender: FDA-Public Use
  Company Number: US-PFIZER INC-2019396200

PATIENT
  Age: 59 Year
  Sex: Female

DRUGS (2)
  1. XELJANZ XR [Suspect]
     Active Substance: TOFACITINIB CITRATE
     Dosage: 11 MG, UNK
     Dates: start: 20190821, end: 20191210
  2. XELJANZ XR [Suspect]
     Active Substance: TOFACITINIB CITRATE
     Dosage: 11 MG, UNK
     Dates: start: 20190801, end: 20191210

REACTIONS (6)
  - Abdominal discomfort [Unknown]
  - Blood pressure increased [Unknown]
  - Oral herpes [Unknown]
  - Anxiety [Unknown]
  - Gastrointestinal disorder [Unknown]
  - Headache [Unknown]
